FAERS Safety Report 13847457 (Version 2)
Quarter: 2017Q4

REPORT INFORMATION
  Report Type: Report from Study
  Country: FR (occurrence: FR)
  Receive Date: 20170808
  Receipt Date: 20171110
  Transmission Date: 20180320
  Serious: Yes (Hospitalization)
  Sender: FDA-Public Use
  Company Number: FR-ROCHE-1972912

PATIENT
  Age: 58 Year
  Sex: Female

DRUGS (5)
  1. BEVACIZUMAB. [Suspect]
     Active Substance: BEVACIZUMAB
     Indication: CERVIX CARCINOMA
     Dosage: DATE OF LAST ADMINISTRATION OF SERIOUS ADVERSE EVENT 18/JUL/2017
     Route: 065
     Dates: start: 20170718, end: 20170718
  2. LEVOCARNIL [Concomitant]
     Active Substance: LEVOCARNITINE
     Indication: NEUROTOXICITY
     Route: 048
  3. ESOMEPRAZOLE [Concomitant]
     Active Substance: ESOMEPRAZOLE
     Route: 048
  4. LYRICA [Concomitant]
     Active Substance: PREGABALIN
     Indication: NEUROTOXICITY
     Route: 048
  5. BLINDED OLAPARIB [Suspect]
     Active Substance: OLAPARIB
     Indication: CERVIX CARCINOMA
     Dosage: DATE OF LAST ADMINISTRATION OF SERIOUS ADVERSE EVENT 23/JUL/2017
     Route: 065
     Dates: start: 20170718, end: 20170723

REACTIONS (1)
  - Intestinal obstruction [Recovered/Resolved]

NARRATIVE: CASE EVENT DATE: 20170730
